FAERS Safety Report 12772088 (Version 1)
Quarter: 2016Q3

REPORT INFORMATION
  Report Type: Spontaneous
  Country: US (occurrence: US)
  Receive Date: 20160922
  Receipt Date: 20160922
  Transmission Date: 20161109
  Serious: Yes (Hospitalization)
  Sender: FDA-Public Use
  Company Number: US-ACTAVIS-2015-24639

PATIENT
  Age: 86 Year
  Sex: Female

DRUGS (1)
  1. LIDOCAINE HYDROCHLORIDE (WATSON LABORATORIES) [Suspect]
     Active Substance: LIDOCAINE HYDROCHLORIDE
     Indication: PAIN
     Dosage: UNKNOWN
     Route: 062
     Dates: start: 20150824

REACTIONS (4)
  - Hypersensitivity [Recovered/Resolved]
  - Skin exfoliation [Recovered/Resolved]
  - Drug ineffective [Recovered/Resolved]
  - Urticaria [Recovered/Resolved]
